FAERS Safety Report 23912489 (Version 1)
Quarter: 2024Q2

REPORT INFORMATION
  Report Type: Report from Study
  Country: US (occurrence: US)
  Receive Date: 20240528
  Receipt Date: 20240528
  Transmission Date: 20240716
  Serious: Yes (Other)
  Sender: FDA-Public Use
  Company Number: US-ABBVIE-4768594

PATIENT
  Sex: Female

DRUGS (2)
  1. VENCLEXTA [Suspect]
     Active Substance: VENETOCLAX
     Indication: B-cell small lymphocytic lymphoma
     Dosage: FORM STRENGTH: 100 MG?TAKE 8 TABLET(S) BY MOUTH ONCE DAILY WITH A MEAL AND A FULL GLASS OF WATER.
     Route: 048
  2. RITUXAN [Suspect]
     Active Substance: RITUXIMAB
     Indication: B-cell small lymphocytic lymphoma
     Dosage: 4 SESSIONS/INFUSIONS A WEEK APART
     Route: 065
     Dates: end: 20230508

REACTIONS (1)
  - Haemolytic anaemia [Unknown]
